FAERS Safety Report 5444384-4 (Version None)
Quarter: 2007Q3

REPORT INFORMATION
  Report Type: 
  Country: None (occurrence: None)
  Receive Date: 20070904
  Receipt Date: 20070904
  Transmission Date: 20080115
  Serious: Yes (Other)
  Sender: FDA-Public Use
  Company Number: None

PATIENT
  Age: 84 Year
  Sex: Female

DRUGS (8)
  1. RIFAXIMIN 200 MG [Suspect]
     Indication: GASTROINTESTINAL INFECTION
     Dosage: 400 MG THREE TIMES DAILY PO
     Route: 048
  2. DIGOXIN [Concomitant]
  3. FERROUS SULFATE TAB [Concomitant]
  4. LEVOFLOXACIN [Concomitant]
  5. LIDODERM [Concomitant]
  6. PANTOPRAZOLE SODIUM [Concomitant]
  7. VERAPAMIL [Concomitant]
  8. SIMVASTATIN [Concomitant]

REACTIONS (4)
  - DYSPHAGIA [None]
  - DYSPNOEA [None]
  - LOCAL SWELLING [None]
  - THROAT TIGHTNESS [None]
